FAERS Safety Report 8756846 (Version 8)
Quarter: 2013Q1

REPORT INFORMATION
  Report Type: Spontaneous
  Country: US (occurrence: US)
  Receive Date: 20120828
  Receipt Date: 20130115
  Transmission Date: 20140127
  Serious: Yes (Hospitalization, Disabling, Other)
  Sender: FDA-Public Use
  Company Number: US-009507513-1205USA00016

PATIENT
  Sex: 0

DRUGS (10)
  1. FOSAMAX [Suspect]
     Indication: OSTEOPOROSIS PROPHYLAXIS
     Dosage: 10 MG, QD
     Route: 048
     Dates: start: 20000907, end: 20001207
  2. FOSAMAX [Suspect]
     Indication: OSTEOPOROSIS
     Dosage: 70 MG, QW
     Route: 048
     Dates: start: 20010224, end: 20050524
  3. FOSAMAX [Suspect]
     Indication: OSTEOPOROSIS PROPHYLAXIS
     Dosage: 70 MG, QW
     Route: 048
     Dates: start: 20101102, end: 201201
  4. FOSAMAX [Suspect]
     Indication: OSTEOPOROSIS
  5. FOSAMAX PLUS D [Suspect]
     Indication: OSTEOPOROSIS PROPHYLAXIS
     Dosage: 70MG/2800IU
     Route: 048
     Dates: start: 20060615, end: 20081125
  6. FOSAMAX PLUS D [Suspect]
     Indication: OSTEOPOROSIS
  7. ALENDRONATE SODIUM [Suspect]
     Indication: OSTEOPOROSIS
     Dosage: 70 MG, QW
     Route: 048
     Dates: start: 20090224, end: 20100222
  8. ALENDRONATE SODIUM [Suspect]
     Indication: OSTEOPOROSIS PROPHYLAXIS
  9. VITAMINS (UNSPECIFIED) [Concomitant]
     Route: 048
  10. SYNTHROID [Concomitant]
     Indication: THYROID DISORDER
     Dosage: UNK
     Dates: start: 1990

REACTIONS (45)
  - Cholecystectomy [Unknown]
  - Intramedullary rod insertion [Recovering/Resolving]
  - Fall [Unknown]
  - Bone density decreased [Unknown]
  - Hypokalaemia [Unknown]
  - Tonsillectomy [Unknown]
  - Femur fracture [Recovering/Resolving]
  - Diverticulum [Not Recovered/Not Resolved]
  - Rheumatoid arthritis [Not Recovered/Not Resolved]
  - Depression [Unknown]
  - Migraine [Unknown]
  - Anxiety [Unknown]
  - Chest pain [Unknown]
  - Hypothyroidism [Unknown]
  - Hyperlipidaemia [Unknown]
  - Fibromyalgia [Unknown]
  - Pleurisy [Unknown]
  - Fatigue [Unknown]
  - Knee operation [Unknown]
  - Dyspnoea [Unknown]
  - Non-cardiac chest pain [Unknown]
  - Muscle strain [Unknown]
  - Ear pain [Unknown]
  - Oropharyngeal pain [Unknown]
  - Insomnia [Unknown]
  - Atrial fibrillation [Unknown]
  - Meniscus injury [Unknown]
  - Osteopenia [Unknown]
  - Intervertebral disc protrusion [Unknown]
  - Meniscus removal [Unknown]
  - Palpitations [Unknown]
  - Baker^s cyst excision [Unknown]
  - Arthropathy [Unknown]
  - Synovial cyst [Unknown]
  - Endodontic procedure [Unknown]
  - Tooth disorder [Unknown]
  - Pain in extremity [Unknown]
  - Gastritis [Unknown]
  - Arthralgia [Unknown]
  - Diarrhoea [Unknown]
  - Back pain [Unknown]
  - Abdominal distension [Unknown]
  - Drug ineffective [Unknown]
  - Headache [Unknown]
  - Abdominal pain upper [Unknown]
